FAERS Safety Report 11561744 (Version 3)
Quarter: 2015Q4

REPORT INFORMATION
  Report Type: Spontaneous
  Country: CA (occurrence: CA)
  Receive Date: 20150928
  Receipt Date: 20151218
  Transmission Date: 20160304
  Serious: Yes (Other)
  Sender: FDA-Public Use
  Company Number: CA-GLAXOSMITHKLINE-A1013514A

PATIENT
  Age: 54 Year
  Sex: Female
  Weight: 82 kg

DRUGS (2)
  1. BENLYSTA [Suspect]
     Active Substance: BELIMUMAB
     Indication: SYSTEMIC LUPUS ERYTHEMATOSUS
     Dosage: 0, 2, 4 WKS THEN EVERY 4 WKS
     Route: 042
     Dates: start: 20120917
  2. BENLYSTA [Suspect]
     Active Substance: BELIMUMAB
     Dosage: 820 MG, UNK

REACTIONS (14)
  - Weight increased [Unknown]
  - Oropharyngeal pain [Recovered/Resolved]
  - Viral infection [Recovered/Resolved]
  - Aphonia [Recovered/Resolved]
  - Hospitalisation [Unknown]
  - Swelling [Unknown]
  - Cough [Recovered/Resolved]
  - Pain [Recovered/Resolved]
  - Pancreatic cyst [Unknown]
  - Pancreatitis [Unknown]
  - Nasopharyngitis [Recovered/Resolved]
  - Laryngitis [Not Recovered/Not Resolved]
  - Malaise [Recovered/Resolved]
  - Pyrexia [Recovered/Resolved]

NARRATIVE: CASE EVENT DATE: 201308
